FAERS Safety Report 9110294 (Version 2)
Quarter: 2013Q1

REPORT INFORMATION
  Report Type: Report from Study
  Country: IT (occurrence: IT)
  Receive Date: 20130222
  Receipt Date: 20130227
  Transmission Date: 20140127
  Serious: Yes (Hospitalization)
  Sender: FDA-Public Use
  Company Number: IT-PFIZER INC-2013064817

PATIENT
  Age: 53 Year
  Sex: Male
  Weight: 78 kg

DRUGS (5)
  1. AXITINIB [Suspect]
     Indication: RENAL CANCER
     Dosage: 5 MG, 2X/DAY
     Route: 048
     Dates: start: 20130124
  2. TRIATEC [Concomitant]
     Indication: CARDIAC FAILURE
     Dosage: 1 DF, 1X/DAY
  3. TRIATEC [Concomitant]
     Indication: HYPERTENSION
  4. NEBIVOLOL [Concomitant]
     Indication: CARDIAC FAILURE
     Dosage: 2.5 MG, 1X/DAY
     Dates: start: 201212
  5. NEBIVOLOL [Concomitant]
     Indication: HYPERTENSION

REACTIONS (3)
  - General physical health deterioration [Recovered/Resolved]
  - Blood potassium increased [Recovering/Resolving]
  - Transaminases increased [Recovering/Resolving]
